FAERS Safety Report 21374488 (Version 1)
Quarter: 2022Q3

REPORT INFORMATION
  Report Type: Spontaneous
  Country: FR (occurrence: FR)
  Receive Date: 20220926
  Receipt Date: 20220926
  Transmission Date: 20221026
  Serious: Yes (Life-Threatening, Hospitalization)
  Sender: FDA-Public Use
  Company Number: FR-AFSSAPS-PC20222336

PATIENT
  Age: 15 Year
  Sex: Male

DRUGS (3)
  1. MORPHINE [Suspect]
     Active Substance: MORPHINE
     Indication: Renal colic
     Dosage: 36 MILLIGRAM, UNK
     Route: 040
     Dates: start: 20220810, end: 20220811
  2. ACETAMINOPHEN [Suspect]
     Active Substance: ACETAMINOPHEN
     Indication: Renal colic
     Dosage: 870 MILLIGRAM, UNK
     Route: 040
     Dates: start: 20220810, end: 20220811
  3. KETOPROFEN [Suspect]
     Active Substance: KETOPROFEN
     Indication: Renal colic
     Dosage: 100 MILLIGRAM, UNK
     Route: 040
     Dates: start: 20220810, end: 20220811

REACTIONS (1)
  - Angioedema [Recovering/Resolving]

NARRATIVE: CASE EVENT DATE: 20220811
